FAERS Safety Report 17140760 (Version 1)
Quarter: 2019Q4

REPORT INFORMATION
  Report Type: Spontaneous
  Country: CA (occurrence: CA)
  Receive Date: 20191211
  Receipt Date: 20191211
  Transmission Date: 20200122
  Serious: Yes (Other)
  Sender: FDA-Public Use
  Company Number: NVSC2019CA045023

PATIENT
  Age: 15 Year
  Sex: Male

DRUGS (3)
  1. ST. JOHN^S WORT [Interacting]
     Active Substance: ST. JOHN^S WORT
     Dosage: UNK
     Route: 048
  2. RITALIN [Suspect]
     Active Substance: METHYLPHENIDATE HYDROCHLORIDE
     Indication: ATTENTION DEFICIT/HYPERACTIVITY DISORDER
     Dosage: 20 MG, QD
     Route: 048
     Dates: start: 1998
  3. ST. JOHN^S WORT [Interacting]
     Active Substance: ST. JOHN^S WORT
     Indication: DEPRESSIVE SYMPTOM
     Dosage: 5 UNK, QD (5 DROPS/DAY)
     Route: 048
     Dates: start: 20010601, end: 20010606

REACTIONS (6)
  - Crying [Recovered/Resolved]
  - Drug interaction [Unknown]
  - Agitation [Recovered/Resolved]
  - Aggression [Recovered/Resolved]
  - Disturbance in attention [Recovered/Resolved]
  - Depression [Recovered/Resolved]
